FAERS Safety Report 4570720-7 (Version None)
Quarter: 2005Q1

REPORT INFORMATION
  Report Type: 
  Country: None (occurrence: None)
  Receive Date: 20050202
  Receipt Date: 20050125
  Transmission Date: 20050727
  Serious: Yes (Death, Hospitalization)
  Sender: FDA-Public Use
  Company Number: 105868ISR

PATIENT
  Age: 62 Year
  Sex: Male

DRUGS (3)
  1. CISPLATIN [Suspect]
     Indication: NON-SMALL CELL LUNG CANCER
     Dosage: 140 MILLIGRAM, INTRAVENOUS (NOS)
     Route: 042
     Dates: start: 20041123, end: 20041123
  2. GEMCITABINE HYDROCHLORIDE [Suspect]
     Indication: NON-SMALL CELL LUNG CANCER
     Dosage: 2800 MILLIGRAM, INTRAVENOUS (NOS)
     Route: 042
     Dates: start: 20041123, end: 20041123
  3. GEMCITABINE HYDROCHLORIDE [Suspect]
     Indication: NON-SMALL CELL LUNG CANCER
     Dosage: 2800 MILLIGRAM, INTRAVENOUS (NOS)
     Route: 042
     Dates: start: 20041130, end: 20041130

REACTIONS (4)
  - AGRANULOCYTOSIS [None]
  - DIALYSIS [None]
  - RENAL FAILURE [None]
  - THROMBOCYTOPENIA [None]
